FAERS Safety Report 5767429-0 (Version None)
Quarter: 2008Q2

REPORT INFORMATION
  Report Type: 
  Country: None (occurrence: None)
  Receive Date: 20080612
  Receipt Date: 20080611
  Transmission Date: 20081010
  Serious: Yes (Disabling)
  Sender: FDA-Public Use
  Company Number: CA-BRISTOL-MYERS SQUIBB COMPANY-14121727

PATIENT
  Age: 69 Year
  Sex: Female

DRUGS (3)
  1. HYDREA [Suspect]
     Indication: CHRONIC MYELOMONOCYTIC LEUKAEMIA
     Dosage: 1 CAPSULE, AND AFTER THREE WEEKS IT WAS INCREASED TO 2 CAPSULES DAILY
     Route: 048
     Dates: start: 20071019, end: 20080208
  2. DANDELION [Suspect]
  3. MEGACE [Concomitant]

REACTIONS (3)
  - BALANCE DISORDER [None]
  - DEAFNESS [None]
  - PAIN [None]
